FAERS Safety Report 15699592 (Version 1)
Quarter: 2018Q4

REPORT INFORMATION
  Report Type: Report from Study
  Country: US (occurrence: US)
  Receive Date: 20181207
  Receipt Date: 20181207
  Transmission Date: 20190205
  Serious: Yes (Death)
  Sender: FDA-Public Use
  Company Number: US-PFIZER INC-2018502939

PATIENT
  Age: 75 Year

DRUGS (9)
  1. CYCLOPHOSPHAMIDE. [Suspect]
     Active Substance: CYCLOPHOSPHAMIDE
     Indication: DIFFUSE LARGE B-CELL LYMPHOMA
     Dosage: 750 MG/M2, CYCLIC (DA-EPOCH-R, DAY 5, WAS ADMINISTERED FOR SIX CYCLES)
     Route: 042
  2. BACTRIM DS [Concomitant]
     Active Substance: SULFAMETHOXAZOLE\TRIMETHOPRIM
     Dosage: UNK UNK, 2X/DAY (SULFAMETHOXAZOLE 400 MG AND TRIMETHOPRIM 160 MG), TWICE DAILY FOR 3 DAY PER WEEK)
     Route: 048
  3. PREDNISONE. [Suspect]
     Active Substance: PREDNISONE
     Indication: DIFFUSE LARGE B-CELL LYMPHOMA
     Dosage: 60 MG/M2, CYCLIC (2X/DAY, DA-EPOCH-R, DAYS 1-5, WAS ADMINISTERED FOR SIX CYCLES)
     Route: 048
  4. DOXORUBICIN HCL [Suspect]
     Active Substance: DOXORUBICIN HYDROCHLORIDE
     Indication: DIFFUSE LARGE B-CELL LYMPHOMA
     Dosage: 10 MG/M2, CYCLIC (DAILY, STARTING DOSES, DA-EPOCH-R, ALL INFUSED FOR 96 H [DAYS 1-5], FOR 6 CYCLES)
  5. METHOTREXATE. [Concomitant]
     Active Substance: METHOTREXATE
     Indication: METASTASES TO MENINGES
     Dosage: 12 MG, CYCLIC (ON DAYS 1 AND 5 OF CYCLES THREE TO SIX OF DA-EPOCH-R FOR A TOTAL OF EIGHT DOSES)
     Route: 037
  6. FILGRASTIM [Concomitant]
     Active Substance: FILGRASTIM
     Indication: DIFFUSE LARGE B-CELL LYMPHOMA
     Dosage: 5 MG/KG, CYCLIC(DAILY,DAY 6 UNTIL ABSOLUTE, NEUTROPHILS }5000 PER UL PAST THE NADIR, FOR SIX CYCLES)
     Route: 058
  7. ETOPOSIDE. [Suspect]
     Active Substance: ETOPOSIDE
     Indication: DIFFUSE LARGE B-CELL LYMPHOMA
     Dosage: 50 MG/M2, CYCLIC (DAILY,STARTING DOSES,DA-EPOCH-R, ALL INFUSED FOR 96 H [DAYS 1-5], FOR 6 CYCLES)
  8. RITUXIMAB. [Suspect]
     Active Substance: RITUXIMAB
     Indication: DIFFUSE LARGE B-CELL LYMPHOMA
     Dosage: 375 MG/M2, CYCLIC (DA-EPOCH-R, DAY 1, WAS ADMINISTERED FOR SIX CYCLES)
     Route: 042
  9. VINCRISTINE SULFATE. [Suspect]
     Active Substance: VINCRISTINE SULFATE
     Indication: DIFFUSE LARGE B-CELL LYMPHOMA
     Dosage: 0.4 MG/M2, CYCLIC (DAILY, STARTING DOSES, DA-EPOCH-R, ALL INFUSED FOR 96 H [DAYS 1-5], FOR 6 CYCLES)

REACTIONS (2)
  - Sepsis [Fatal]
  - Multiple organ dysfunction syndrome [Fatal]
